FAERS Safety Report 13535073 (Version 3)
Quarter: 2017Q4

REPORT INFORMATION
  Report Type: Spontaneous
  Country: US (occurrence: US)
  Receive Date: 20170511
  Receipt Date: 20171220
  Transmission Date: 20180320
  Serious: Yes (Life-Threatening, Hospitalization, Other)
  Sender: FDA-Public Use
  Company Number: US-BAYER-2017-085691

PATIENT
  Age: 47 Year
  Sex: Male

DRUGS (3)
  1. BAYER ASPIRIN [Suspect]
     Active Substance: ASPIRIN
     Indication: CEREBRAL INFARCTION
     Dosage: 1 DF, QD
  2. HEPARIN [Interacting]
     Active Substance: HEPARIN SODIUM
     Route: 042
  3. CLOPIDOGREL [Interacting]
     Active Substance: CLOPIDOGREL BISULFATE
     Indication: CEREBRAL INFARCTION
     Dosage: 1 DF, QD

REACTIONS (4)
  - Haemorrhagic transformation stroke [Recovered/Resolved]
  - Drug administration error [None]
  - Brain oedema [Recovered/Resolved]
  - Labelled drug-drug interaction medication error [None]
